FAERS Safety Report 19066074 (Version 1)
Quarter: 2021Q1

REPORT INFORMATION
  Report Type: Spontaneous
  Country: US (occurrence: US)
  Receive Date: 20210327
  Receipt Date: 20210327
  Transmission Date: 20210420
  Serious: No
  Sender: FDA-Public Use
  Company Number: US-009507513-2103USA005924

PATIENT
  Age: 39 Year
  Sex: Female

DRUGS (1)
  1. JANUVIA [Suspect]
     Active Substance: SITAGLIPTIN PHOSPHATE
     Dosage: 100 MG ONCE DAILY
     Route: 048
     Dates: start: 20210305, end: 20210318

REACTIONS (2)
  - Maternal exposure during breast feeding [Unknown]
  - Suppressed lactation [Recovering/Resolving]

NARRATIVE: CASE EVENT DATE: 202103
